FAERS Safety Report 5144541-0 (Version None)
Quarter: 2006Q4

REPORT INFORMATION
  Report Type: 
  Country: None (occurrence: None)
  Receive Date: 20061031
  Receipt Date: 20061020
  Transmission Date: 20070319
  Serious: Yes (Other)
  Sender: FDA-Public Use
  Company Number: 2006130314

PATIENT
  Sex: Male

DRUGS (1)
  1. LIPITOR [Suspect]
     Dates: end: 20061001

REACTIONS (6)
  - ABNORMAL BEHAVIOUR [None]
  - CRYING [None]
  - DEMENTIA ALZHEIMER'S TYPE [None]
  - GLOBAL AMNESIA [None]
  - MUSCLE SPASMS [None]
  - SUICIDAL IDEATION [None]
